FAERS Safety Report 5192072-4 (Version None)
Quarter: 2006Q4

REPORT INFORMATION
  Report Type: 
  Country: None (occurrence: None)
  Receive Date: 20061221
  Receipt Date: 20061221
  Transmission Date: 20070319
  Serious: Yes (Hospitalization)
  Sender: FDA-Public Use
  Company Number: None

PATIENT
  Sex: Female
  Weight: 64.4108 kg

DRUGS (4)
  1. ISONIAZID [Suspect]
     Indication: TUBERCULOSIS
     Dosage: 300MG   QD   PO
     Route: 048
     Dates: start: 20061003, end: 20061113
  2. ISONIAZID [Suspect]
     Indication: TUBERCULOSIS SKIN TEST POSITIVE
     Dosage: 300MG   QD   PO
     Route: 048
     Dates: start: 20061003, end: 20061113
  3. ISONIAZID [Suspect]
     Indication: TUBERCULOSIS
     Dosage: 300MG   QD   PO
     Route: 048
     Dates: start: 20061113, end: 20061210
  4. ISONIAZID [Suspect]
     Indication: TUBERCULOSIS SKIN TEST POSITIVE
     Dosage: 300MG   QD   PO
     Route: 048
     Dates: start: 20061113, end: 20061210

REACTIONS (3)
  - ALANINE AMINOTRANSFERASE INCREASED [None]
  - ASPARTATE AMINOTRANSFERASE INCREASED [None]
  - LIVER FUNCTION TEST ABNORMAL [None]
